FAERS Safety Report 8818774 (Version 1)
Quarter: 2012Q4

REPORT INFORMATION
  Report Type: 
  Country: US (occurrence: US)
  Receive Date: 20121001
  Receipt Date: 20121001
  Transmission Date: 20130627
  Serious: Yes (Other)
  Sender: FDA-Public Use
  Company Number: PHHY2012US083995

PATIENT
  Age: 75 Year
  Sex: Female

DRUGS (1)
  1. ACETYLSALICYLIC ACID [Suspect]
     Indication: ANALGESIC THERAPY
     Dosage: 1 DF, UNK
     Route: 048

REACTIONS (6)
  - Joint injury [Recovered/Resolved]
  - Arthritis [Not Recovered/Not Resolved]
  - Lacrimation increased [Recovered/Resolved]
  - Sneezing [Recovered/Resolved]
  - Throat irritation [Recovered/Resolved]
  - Swelling face [Recovered/Resolved]
